FAERS Safety Report 9168459 (Version 1)
Quarter: 2013Q1

REPORT INFORMATION
  Report Type: Spontaneous
  Country: BR (occurrence: None)
  Receive Date: 20130307
  Receipt Date: 20130307
  Transmission Date: 20140127
  Serious: Yes (Other)
  Sender: FDA-Public Use
  Company Number: DSU-2013-01135

PATIENT
  Age: 59 Year
  Sex: Female
  Weight: 59 kg

DRUGS (6)
  1. OLMETEC HCT [Suspect]
     Indication: HYPERTENSION
  2. OLMETEC (OLMESARTAN MEDOXOMIL) [Suspect]
     Indication: PRODUCT USED FOR UNKNOWN INDICATION
  3. GLIFAGE (METFORMIN) [Concomitant]
  4. URO-VAXOM (ESCHERICHIA COLI) (ESCHERICHIA COLI) [Concomitant]
  5. PREVELIP (CUCURBITA PEPO OIL, LINUM USITATISSMUM OIL OIL, OENOTHERA BIENNISOIL, RIBES NIGRUM OIL, BRASSICA CAMPESTRIS OIL) (CUCURBITA PEPO OIL, LINUM USITATISSIMUM OIL, OENOTHERA BIENNIS OIL, RIBES NIGRUM OIL, BRASSICA CAMPESTRIS OIL) [Concomitant]
  6. HERBALS [Suspect]

REACTIONS (3)
  - Drug dispensing error [None]
  - Wrong drug administered [None]
  - Thyroid neoplasm [None]
